FAERS Safety Report 19172313 (Version 1)
Quarter: 2021Q2

REPORT INFORMATION
  Report Type: Report from Study
  Country: US (occurrence: US)
  Receive Date: 20210423
  Receipt Date: 20210423
  Transmission Date: 20210717
  Serious: Yes (Hospitalization)
  Sender: FDA-Public Use
  Company Number: US-ROCHE-2810737

PATIENT
  Age: 71 Year
  Sex: Male
  Weight: 88.7 kg

DRUGS (5)
  1. OXALIPLATIN. [Suspect]
     Active Substance: OXALIPLATIN
     Indication: COLON CANCER STAGE III
     Dosage: MOST RECENT DOSE ADMINISTERED ON 01/DEC/2020 AT THE DOSE OF 172.5MG
     Route: 042
     Dates: start: 20201118
  2. 5?FLUOROURACIL [Suspect]
     Active Substance: FLUOROURACIL
     Indication: COLON CANCER STAGE III
     Dosage: MOST RECENT DOST ADMINISTERED ON 01/DEC/2020 AT THE DOSE OF 5675 MG
     Route: 040
     Dates: start: 20201118
  3. AMOXICILLIN. [Concomitant]
     Active Substance: AMOXICILLIN
  4. ATEZOLIZUMAB. [Suspect]
     Active Substance: ATEZOLIZUMAB
     Indication: COLON CANCER STAGE III
     Dosage: MOST RECENT DOSE ADMINISTERED ON  01/DEC/2020 AT THE DOSE OF 840 MG
     Route: 042
     Dates: start: 20201118
  5. LEUCOVORIN CALCIUM. [Suspect]
     Active Substance: LEUCOVORIN CALCIUM
     Indication: COLON CANCER STAGE III
     Dosage: MOST RECENT DOSE ADMINISTERED ON: 01/DEC/2020 AT THE DOSE OF  810 MG
     Route: 042
     Dates: start: 20201118

REACTIONS (6)
  - Enterocolitis infectious [Unknown]
  - Acute kidney injury [Unknown]
  - Diarrhoea [Unknown]
  - Atrial fibrillation [Unknown]
  - Syncope [Recovered/Resolved]
  - Sepsis [Unknown]

NARRATIVE: CASE EVENT DATE: 20201209
